FAERS Safety Report 19933127 (Version 3)
Quarter: 2021Q4

REPORT INFORMATION
  Report Type: Spontaneous
  Country: DE (occurrence: DE)
  Receive Date: 20211008
  Receipt Date: 20211116
  Transmission Date: 20220303
  Serious: Yes (Other)
  Sender: FDA-Public Use
  Company Number: DE-VIIV HEALTHCARE LIMITED-DE2021EME206712

PATIENT
  Age: 31 Year
  Sex: Male
  Weight: 77 kg

DRUGS (2)
  1. VOCABRIA [Suspect]
     Active Substance: CABOTEGRAVIR SODIUM
     Indication: Antiretroviral therapy
     Dosage: 600 MG
     Route: 042
     Dates: start: 20210720
  2. RILPIVIRINE [Suspect]
     Active Substance: RILPIVIRINE
     Indication: Antiretroviral therapy
     Dosage: 900 MG
     Route: 042
     Dates: start: 20210720

REACTIONS (1)
  - Blood HIV RNA increased [Recovered/Resolved]

NARRATIVE: CASE EVENT DATE: 20210812
